FAERS Safety Report 5553609-6 (Version None)
Quarter: 2007Q4

REPORT INFORMATION
  Report Type: 
  Country: None (occurrence: None)
  Receive Date: 20071213
  Receipt Date: 20071210
  Transmission Date: 20080405
  Serious: Yes (Disabling, Other)
  Sender: FDA-Public Use
  Company Number: PHRM2007FR02709

PATIENT
  Sex: Male
  Weight: 50 kg

DRUGS (1)
  1. ZOMETA [Suspect]
     Indication: METASTASES TO BONE
     Dosage: 4 MG, QMO
     Route: 042
     Dates: start: 20021113, end: 20070112

REACTIONS (2)
  - OSTEONECROSIS [None]
  - SURGERY [None]
